FAERS Safety Report 7499959-8 (Version None)
Quarter: 2011Q2

REPORT INFORMATION
  Report Type: 
  Country: None (occurrence: None)
  Receive Date: 20110524
  Receipt Date: 20110517
  Transmission Date: 20111010
  Serious: Yes (Death, Life-Threatening, Hospitalization)
  Sender: FDA-Public Use
  Company Number: US-ASTRAZENECA-2011SE24473

PATIENT
  Age: 987 Month
  Sex: Female
  Weight: 81.2 kg

DRUGS (19)
  1. ALBUTEROL SULFATE AUTOHALER [Concomitant]
  2. ISONIAZID [Concomitant]
  3. CALCIUM +D [Concomitant]
     Route: 048
  4. DEXAMETHASONE [Concomitant]
     Route: 048
  5. RADIATION THERAPY [Suspect]
     Indication: GLIOBLASTOMA
     Route: 065
  6. PRAVASTATIN [Concomitant]
     Route: 048
  7. SYNTHROID [Concomitant]
     Route: 048
  8. TEMOZOLOMIDE [Suspect]
     Indication: GLIOBLASTOMA
     Route: 048
     Dates: start: 20110329, end: 20110425
  9. SENNA-MINT WAF [Concomitant]
  10. COLACE [Concomitant]
  11. REGULAR INSULIN [Concomitant]
  12. ADVAIR DISKUS 100/50 [Concomitant]
     Dosage: 100-50 MCG
  13. AMLODIPINE [Concomitant]
     Route: 048
  14. BACTRIUM DS [Concomitant]
     Dosage: 160-800 MG TABLET PO BID
     Route: 048
  15. VANDETANIB [Suspect]
     Indication: GLIOBLASTOMA
     Route: 048
     Dates: start: 20110324, end: 20110425
  16. DECADRON [Concomitant]
  17. ACETAMINOPHEN [Concomitant]
     Dosage: 650 MG Q6H PRN
     Route: 048
  18. NORVASC [Concomitant]
  19. K-PHOS NEUTRAL [Concomitant]
     Route: 048

REACTIONS (4)
  - DEATH [None]
  - THROMBOCYTOPENIA [None]
  - PANCYTOPENIA [None]
  - FEBRILE NEUTROPENIA [None]
